FAERS Safety Report 4317067-1 (Version None)
Quarter: 2004Q1

REPORT INFORMATION
  Report Type: 
  Country: None (occurrence: None)
  Receive Date: 20040312
  Receipt Date: 20040304
  Transmission Date: 20041129
  Serious: Yes (Other)
  Sender: FDA-Public Use
  Company Number: 2004202456GB

PATIENT
  Age: 86 Year
  Sex: Female

DRUGS (3)
  1. SULFASALAZINE [Suspect]
     Indication: COLITIS ULCERATIVE
     Dosage: 1 G, BID, ORAL; 500 MG/DAY
     Route: 048
     Dates: start: 19690101
  2. TAXELOL [Concomitant]
  3. ASPIRINA [Concomitant]

REACTIONS (6)
  - ANAEMIA [None]
  - DYSPNOEA [None]
  - NEUROPATHY PERIPHERAL [None]
  - PRURITUS [None]
  - PULMONARY FIBROSIS [None]
  - VERTIGO [None]
